FAERS Safety Report 7262488-0 (Version None)
Quarter: 2011Q1

REPORT INFORMATION
  Report Type: 
  Country: None (occurrence: None)
  Receive Date: 20110130
  Receipt Date: 20101208
  Transmission Date: 20110831
  Serious: No
  Sender: FDA-Public Use
  Company Number: US-ABBOTT-10P-163-0690495-00

PATIENT
  Age: 77 Year
  Sex: Female

DRUGS (12)
  1. METHOTREXATE [Concomitant]
     Indication: PRODUCT USED FOR UNKNOWN INDICATION
     Route: 058
  2. LIPITOR [Concomitant]
     Indication: BLOOD CHOLESTEROL INCREASED
     Dosage: DAILY
  3. ZOLPIDEM TARTRATE [Concomitant]
     Indication: INSOMNIA
  4. HYDROCODONE [Concomitant]
     Indication: PAIN
  5. BENICAR [Concomitant]
     Indication: HYPERTENSION
     Dosage: DAILY
  6. BONIVA [Concomitant]
     Indication: BONE DENSITY DECREASED
  7. PLAVIX [Concomitant]
     Indication: BLOOD CHOLESTEROL INCREASED
     Dosage: DAILY
  8. HUMIRA [Suspect]
     Indication: PSORIATIC ARTHROPATHY
  9. ASA [Concomitant]
     Indication: PRODUCT USED FOR UNKNOWN INDICATION
     Dosage: DAILY
  10. LEVOTHYROXINE SODIUM [Concomitant]
     Indication: THYROID DISORDER
     Dosage: DAILY
  11. TOPROL-XL [Concomitant]
     Indication: HYPERTENSION
     Dosage: IN THE EVENING
  12. AMLODIPINE [Concomitant]
     Indication: HYPERTENSION
     Dosage: DAILY

REACTIONS (6)
  - PAIN IN EXTREMITY [None]
  - HERPES ZOSTER [None]
  - DRUG EFFECT DECREASED [None]
  - JOINT SWELLING [None]
  - PAIN [None]
  - DRUG DOSE OMISSION [None]
